FAERS Safety Report 20020015 (Version 1)
Quarter: 2021Q4

REPORT INFORMATION
  Report Type: Spontaneous
  Country: US (occurrence: US)
  Receive Date: 20211101
  Receipt Date: 20211101
  Transmission Date: 20220303
  Serious: Yes (Other)
  Sender: FDA-Public Use
  Company Number: US-PFIZER INC-202101432820

PATIENT
  Age: 64 Year
  Sex: Male

DRUGS (1)
  1. SIROLIMUS [Suspect]
     Active Substance: SIROLIMUS
     Indication: Liver transplant rejection
     Dosage: 1 MG, 1X/DAY (0.5MG, TWO TABLETS BY MOUTH DAILY)
     Route: 048
     Dates: start: 202107, end: 20210810

REACTIONS (4)
  - Rash pruritic [Unknown]
  - Rash erythematous [Unknown]
  - Rash [Unknown]
  - Off label use [Unknown]
